FAERS Safety Report 21693724 (Version 1)
Quarter: 2022Q4

REPORT INFORMATION
  Report Type: Spontaneous
  Country: US (occurrence: US)
  Receive Date: 20221207
  Receipt Date: 20221207
  Transmission Date: 20230113
  Serious: No
  Sender: FDA-Public Use
  Company Number: US-SA-SAC20221205000218

PATIENT
  Sex: Male
  Weight: 89 kg

DRUGS (5)
  1. DUPIXENT [Suspect]
     Active Substance: DUPILUMAB
     Indication: Eosinophilic oesophagitis
     Dosage: DOSE AND ROUTE PRESCRIBED: 300 MG (1 PEN) UNDER THE SKIN FREQUENCY: ONCE WEEKLY
     Route: 058
     Dates: start: 20221122
  2. ALBUTEROL SULFATE [Concomitant]
     Active Substance: ALBUTEROL SULFATE
  3. BETAMETHASONE [Concomitant]
     Active Substance: BETAMETHASONE
  4. PANTOPRAZOLE SODIUM [Concomitant]
     Active Substance: PANTOPRAZOLE SODIUM
  5. SIMVASTATIN [Concomitant]
     Active Substance: SIMVASTATIN

REACTIONS (3)
  - Arthropod sting [Unknown]
  - Arthropod bite [Unknown]
  - Skin irritation [Unknown]
